FAERS Safety Report 20457682 (Version 1)
Quarter: 2022Q1

REPORT INFORMATION
  Report Type: Spontaneous
  Country: None (occurrence: FI)
  Receive Date: 20220210
  Receipt Date: 20220210
  Transmission Date: 20220423
  Serious: Yes (Disabling)
  Sender: FDA-Public Use
  Company Number: FI-Canton Laboratories, LLC-2125777

PATIENT
  Age: 41 Year
  Sex: Female

DRUGS (1)
  1. NAPROSYN [Suspect]
     Active Substance: NAPROXEN
     Indication: Migraine
     Route: 048
     Dates: start: 20210506, end: 20210520

REACTIONS (1)
  - Hypoacusis [Recovered/Resolved with Sequelae]

NARRATIVE: CASE EVENT DATE: 20210519
